FAERS Safety Report 10614493 (Version 3)
Quarter: 2015Q1

REPORT INFORMATION
  Report Type: Report from Study
  Country: US (occurrence: US)
  Receive Date: 20141129
  Receipt Date: 20150115
  Transmission Date: 20150720
  Serious: Yes (Hospitalization)
  Sender: FDA-Public Use
  Company Number: US-ABBVIE-14K-163-1311983-00

PATIENT
  Age: 10 Year
  Sex: Male
  Weight: 31.8 kg

DRUGS (2)
  1. METHOTREXATE [Concomitant]
     Active Substance: METHOTREXATE
     Indication: PRODUCT USED FOR UNKNOWN INDICATION
  2. HUMIRA [Suspect]
     Active Substance: ADALIMUMAB
     Indication: CROHN^S DISEASE
     Route: 058
     Dates: start: 20140723, end: 20141023

REACTIONS (8)
  - Pyrexia [Not Recovered/Not Resolved]
  - Clostridium difficile infection [Unknown]
  - Drug specific antibody present [Not Recovered/Not Resolved]
  - Drug effect decreased [Not Recovered/Not Resolved]
  - Rectal abscess [Not Recovered/Not Resolved]
  - Abdominal pain [Unknown]
  - Anal fistula [Not Recovered/Not Resolved]
  - Clostridium difficile colitis [Unknown]

NARRATIVE: CASE EVENT DATE: 2014
